FAERS Safety Report 6647163-5 (Version None)
Quarter: 2010Q1

REPORT INFORMATION
  Report Type: 
  Country: None (occurrence: None)
  Receive Date: 20100322
  Receipt Date: 20100322
  Transmission Date: 20100710
  Serious: Yes (Hospitalization)
  Sender: FDA-Public Use
  Company Number: None

PATIENT
  Age: 21 Year
  Sex: Female
  Weight: 75.6 kg

DRUGS (2)
  1. GUAIFENESIN AND DEXTROMETHORPHAN HBR [Suspect]
     Indication: EUPHORIC MOOD
     Dosage: 200 MG ONCE PO
     Route: 048
     Dates: start: 20100310
  2. GUAIFENESIN AND DEXTROMETHORPHAN HBR [Suspect]
     Indication: SINUSITIS
     Dosage: 200 MG ONCE PO
     Route: 048
     Dates: start: 20100310

REACTIONS (2)
  - CONFUSIONAL STATE [None]
  - OVERDOSE [None]
